FAERS Safety Report 15415808 (Version 1)
Quarter: 2018Q3

REPORT INFORMATION
  Report Type: Spontaneous
  Country: US (occurrence: US)
  Receive Date: 20180922
  Receipt Date: 20180922
  Transmission Date: 20181010
  Serious: No
  Sender: FDA-Public Use
  Company Number: US-JNJFOC-20180835789

PATIENT
  Sex: Male

DRUGS (7)
  1. PRALUENT [Concomitant]
     Active Substance: ALIROCUMAB
     Indication: BLOOD CHOLESTEROL ABNORMAL
     Route: 065
     Dates: start: 20180517
  2. CORTISONE [Concomitant]
     Active Substance: CORTISONE\HYDROCORTISONE
     Indication: ERYTHEMA
     Route: 065
  3. KENALOG [Concomitant]
     Active Substance: TRIAMCINOLONE ACETONIDE
     Indication: ERYTHEMA
     Route: 065
  4. ZYRTEC [Suspect]
     Active Substance: CETIRIZINE HYDROCHLORIDE
     Indication: PRURITUS
     Route: 065
  5. ZYRTEC [Suspect]
     Active Substance: CETIRIZINE HYDROCHLORIDE
     Indication: ERYTHEMA
     Route: 065
  6. CORTISONE [Concomitant]
     Active Substance: CORTISONE\HYDROCORTISONE
     Indication: PRURITUS
     Route: 065
  7. KENALOG [Concomitant]
     Active Substance: TRIAMCINOLONE ACETONIDE
     Indication: PRURITUS
     Route: 065

REACTIONS (1)
  - Product use in unapproved indication [Unknown]
